FAERS Safety Report 6574715-3 (Version None)
Quarter: 2010Q1

REPORT INFORMATION
  Report Type: 
  Country: None (occurrence: None)
  Receive Date: 20100209
  Receipt Date: 20100129
  Transmission Date: 20100710
  Serious: Yes (Hospitalization, Other)
  Sender: FDA-Public Use
  Company Number: PHHY2009AU56330

PATIENT
  Sex: Female

DRUGS (7)
  1. CLOZARIL [Suspect]
     Indication: SCHIZOPHRENIA
     Dosage: 350 MG, UNK
     Route: 048
     Dates: start: 20091023
  2. OLANZAPINE [Concomitant]
     Indication: SCHIZOPHRENIA
     Dosage: 5-10 MG TDS PRN
     Route: 048
  3. URAL [Concomitant]
     Indication: URINARY TRACT DISORDER
     Dosage: SATCHET QID PRN
     Route: 048
     Dates: start: 20091214
  4. METOPROLOL TARTRATE [Concomitant]
     Indication: ANXIETY
     Dosage: 25 MG DAILY PRN
     Route: 048
  5. LEVLEN ED [Concomitant]
     Indication: CONTRACEPTION
     Dosage: 150/30 MCG AT NOCTE
     Dates: start: 20091110
  6. MOVICOL [Concomitant]
     Indication: CONTRACEPTION
     Dosage: DAILY
     Route: 048
     Dates: start: 20091116
  7. HYOSCINE HBR HYT [Concomitant]
     Indication: SALIVARY HYPERSECRETION
     Dosage: 0.3 MG NOCTE
     Dates: start: 20091116

REACTIONS (4)
  - ABDOMINAL PAIN [None]
  - LIVER FUNCTION TEST ABNORMAL [None]
  - MENTAL DISORDER [None]
  - PSYCHOSOMATIC DISEASE [None]
